FAERS Safety Report 16806539 (Version 2)
Quarter: 2020Q3

REPORT INFORMATION
  Report Type: Spontaneous
  Country: US (occurrence: US)
  Receive Date: 20190913
  Receipt Date: 20200728
  Transmission Date: 20201102
  Serious: No
  Sender: FDA-Public Use
  Company Number: US-SA-2019SA251988

PATIENT

DRUGS (6)
  1. VYVANSE [Concomitant]
     Active Substance: LISDEXAMFETAMINE DIMESYLATE
  2. NALTREXONE [Concomitant]
     Active Substance: NALTREXONE
  3. TRIAMCINOLON [TRIAMCINOLONE] [Concomitant]
     Active Substance: TRIAMCINOLONE
  4. DUPIXENT [Suspect]
     Active Substance: DUPILUMAB
     Indication: DERMATITIS
     Dosage: 300 MG, QOW
     Route: 058
     Dates: start: 20190104
  5. TOBRAMYCIN. [Concomitant]
     Active Substance: TOBRAMYCIN
  6. MOMETASONE [Concomitant]
     Active Substance: MOMETASONE

REACTIONS (3)
  - Rash [Not Recovered/Not Resolved]
  - Rash [Recovered/Resolved]
  - Haematoma [Not Recovered/Not Resolved]

NARRATIVE: CASE EVENT DATE: 201909
